FAERS Safety Report 9632822 (Version 1)
Quarter: 2013Q4

REPORT INFORMATION
  Report Type: Spontaneous
  Country: US (occurrence: US)
  Receive Date: 20131018
  Receipt Date: 20131018
  Transmission Date: 20140711
  Serious: No
  Sender: FDA-Public Use
  Company Number: US-ASTRAZENECA-2013SE62822

PATIENT
  Sex: Male
  Weight: 95.7 kg

DRUGS (3)
  1. CRESTOR [Suspect]
     Route: 048
  2. AMIODARONE [Concomitant]
  3. LIPITOR [Concomitant]

REACTIONS (7)
  - Dyspnoea exertional [Unknown]
  - Atrial fibrillation [Unknown]
  - Sick sinus syndrome [Unknown]
  - Weight increased [Unknown]
  - Myalgia [Unknown]
  - Myalgia [Unknown]
  - Fatigue [Unknown]
